FAERS Safety Report 17687875 (Version 1)
Quarter: 2020Q2

REPORT INFORMATION
  Report Type: Spontaneous
  Country: US (occurrence: US)
  Receive Date: 20200417
  Receipt Date: 20200417
  Transmission Date: 20200714
  Serious: Yes (Hospitalization)
  Sender: FDA-Public Use
  Company Number: None

PATIENT
  Age: 73 Year
  Sex: Male
  Weight: 107.95 kg

DRUGS (1)
  1. WARFARIN (WARFARIN NA (EXELAN) 5MG TAB) [Suspect]
     Active Substance: WARFARIN SODIUM
     Indication: GASTROINTESTINAL HAEMORRHAGE
     Route: 048
     Dates: start: 20170325, end: 20171028

REACTIONS (4)
  - Transfusion [None]
  - Packed red blood cell transfusion [None]
  - Gastric haemorrhage [None]
  - Oesophagitis [None]

NARRATIVE: CASE EVENT DATE: 20171028
